FAERS Safety Report 11131275 (Version 1)
Quarter: 2015Q2

REPORT INFORMATION
  Report Type: Spontaneous
  Country: US (occurrence: None)
  Receive Date: 20150521
  Receipt Date: 20150521
  Transmission Date: 20150821
  Serious: Yes (Hospitalization)
  Sender: FDA-Public Use
  Company Number: None

PATIENT
  Age: 69 Year
  Sex: Female

DRUGS (2)
  1. AFINITOR [Suspect]
     Active Substance: EVEROLIMUS
     Indication: LUNG NEOPLASM MALIGNANT
     Route: 048
  2. AFINITOR [Suspect]
     Active Substance: EVEROLIMUS
     Indication: HEPATIC CANCER
     Route: 048

REACTIONS (7)
  - Nausea [None]
  - Rash [None]
  - Asthenia [None]
  - Pruritus [None]
  - Drug ineffective [None]
  - Arthralgia [None]
  - Pulmonary oedema [None]

NARRATIVE: CASE EVENT DATE: 201504
